FAERS Safety Report 6189402-3 (Version None)
Quarter: 2009Q2

REPORT INFORMATION
  Report Type: 
  Country: None (occurrence: None)
  Receive Date: 20090512
  Receipt Date: 20090428
  Transmission Date: 20091009
  Serious: Yes (Other)
  Sender: FDA-Public Use
  Company Number: 2009AL002842

PATIENT
  Age: 70 Year
  Sex: Female

DRUGS (2)
  1. IBUPROFEN ORAL SUSPENSION [Suspect]
     Dosage: PO
     Route: 048
  2. ARICEPT [Concomitant]

REACTIONS (2)
  - DRUG INTERACTION [None]
  - GASTRIC ULCER [None]
